FAERS Safety Report 4445730-0 (Version None)
Quarter: 2004Q3

REPORT INFORMATION
  Report Type: 
  Country: None (occurrence: None)
  Receive Date: 20040910
  Receipt Date: 20040830
  Transmission Date: 20050211
  Serious: Yes (Death, Hospitalization)
  Sender: FDA-Public Use
  Company Number: 200416577US

PATIENT
  Age: 71 Year
  Sex: Male

DRUGS (2)
  1. TAXOTERE [Suspect]
     Indication: LIPOSARCOMA
     Dosage: DOSE: 75 MG/M2 ON DAY 8
     Route: 042
     Dates: start: 20040405, end: 20040809
  2. GEMCITABINE [Suspect]
     Indication: LIPOSARCOMA
     Dosage: DOSE: 675 MG/M2 ON DAYS 1 AND 8
     Route: 042
     Dates: start: 20040405, end: 20040809

REACTIONS (9)
  - ABDOMINAL DISCOMFORT [None]
  - ABDOMINAL DISTENSION [None]
  - ANOREXIA [None]
  - ASTHENIA [None]
  - BLOOD CREATININE INCREASED [None]
  - EARLY SATIETY [None]
  - GENERAL PHYSICAL HEALTH DETERIORATION [None]
  - MYOCARDIAL INFARCTION [None]
  - SYNCOPE [None]
